FAERS Safety Report 23405743 (Version 1)
Quarter: 2024Q1

REPORT INFORMATION
  Report Type: Spontaneous
  Country: US (occurrence: None)
  Receive Date: 20240113
  Receipt Date: 20240113
  Transmission Date: 20240410
  Serious: Yes (Hospitalization)
  Sender: FDA-Public Use
  Company Number: None

PATIENT
  Age: 36 Year
  Sex: Male
  Weight: 61.7 kg

DRUGS (10)
  1. ENVARSUS XR [Suspect]
     Active Substance: TACROLIMUS
     Indication: Prophylaxis against transplant rejection
     Dosage: FREQUENCY : DAILY;?
     Route: 048
     Dates: start: 20220422
  2. ENVARSUS XR [Suspect]
     Active Substance: TACROLIMUS
     Indication: Prophylaxis against transplant rejection
     Dosage: FREQUENCY : DAILY;?
     Route: 048
     Dates: start: 20220422
  3. ESCITALOPRAM OXALATE [Concomitant]
     Active Substance: ESCITALOPRAM OXALATE
     Dates: start: 20220422
  4. Albuterol 0.083% Neb [Concomitant]
     Dates: start: 20220422
  5. Sodium Bicarbonate 10 gr (650mg) [Concomitant]
     Dates: start: 20220422
  6. PREDNISONE [Concomitant]
     Active Substance: PREDNISONE
     Dates: start: 20220422
  7. FUROSEMIDE [Concomitant]
     Active Substance: FUROSEMIDE
     Dates: start: 20220422
  8. LOKELMA [Concomitant]
     Active Substance: SODIUM ZIRCONIUM CYCLOSILICATE
     Dates: start: 20220422
  9. LOSARTAN [Concomitant]
     Active Substance: LOSARTAN
     Dates: start: 20220422
  10. AMLODIPINE [Concomitant]
     Active Substance: AMLODIPINE BESYLATE
     Dates: start: 20220422

REACTIONS (4)
  - Pyrexia [None]
  - Urinary tract infection [None]
  - COVID-19 [None]
  - Nosocomial infection [None]

NARRATIVE: CASE EVENT DATE: 20231223
